FAERS Safety Report 9469298 (Version 2)
Quarter: 2013Q3

REPORT INFORMATION
  Report Type: Spontaneous
  Country: JP (occurrence: JP)
  Receive Date: 20130821
  Receipt Date: 20130905
  Transmission Date: 20140515
  Serious: Yes (Hospitalization)
  Sender: FDA-Public Use
  Company Number: JP-PFIZER INC-2013241431

PATIENT
  Age: 67 Year
  Sex: Male

DRUGS (10)
  1. SEIBULE [Suspect]
     Dosage: 50 MG, 3X/DAY
     Route: 048
     Dates: start: 20130301, end: 20130813
  2. TAKEPRON [Suspect]
     Dosage: 15 MG, UNK
     Route: 065
     Dates: end: 20130813
  3. ACTOS [Suspect]
     Dosage: 15 MG, UNK
     Route: 048
     Dates: end: 20130813
  4. AZILSARTAN [Concomitant]
     Dosage: UNK
  5. LIPITOR [Concomitant]
     Dosage: UNK
  6. AMARYL [Concomitant]
     Dosage: UNK
  7. BAYASPIRIN [Concomitant]
     Dosage: UNK
  8. PLAVIX [Concomitant]
     Dosage: UNK
  9. JANUVIA [Concomitant]
     Dosage: UNK
  10. ARTIST [Concomitant]
     Dosage: UNK

REACTIONS (3)
  - Diarrhoea [Recovering/Resolving]
  - Dehydration [Recovering/Resolving]
  - Acute prerenal failure [Recovering/Resolving]
